FAERS Safety Report 9909673 (Version 1)
Quarter: 2014Q1

REPORT INFORMATION
  Report Type: Spontaneous
  Country: US (occurrence: None)
  Receive Date: 20140218
  Receipt Date: 20140218
  Transmission Date: 20141002
  Serious: Yes (Hospitalization, Other)
  Sender: FDA-Public Use
  Company Number: None

PATIENT
  Age: 52 Year
  Sex: Female
  Weight: 64.86 kg

DRUGS (2)
  1. LYRICA [Suspect]
     Indication: PAIN
     Route: 048
     Dates: start: 20091127, end: 20111112
  2. LYRICA [Suspect]
     Indication: FIBROMYALGIA
     Route: 048
     Dates: start: 20091127, end: 20111112

REACTIONS (9)
  - Cognitive disorder [None]
  - Memory impairment [None]
  - Drug withdrawal syndrome [None]
  - Convulsion [None]
  - Hallucination [None]
  - Respiratory distress [None]
  - Cardiac disorder [None]
  - Body temperature fluctuation [None]
  - Asthenia [None]
